FAERS Safety Report 8206725-4 (Version None)
Quarter: 2012Q1

REPORT INFORMATION
  Report Type: 
  Country: None (occurrence: None)
  Receive Date: 20120314
  Receipt Date: 20120307
  Transmission Date: 20120608
  Serious: No
  Sender: FDA-Public Use
  Company Number: US-BIOGENIDEC-2012BI008680

PATIENT
  Sex: Female

DRUGS (5)
  1. MEDICATION (NOS) [Concomitant]
     Indication: PANIC ATTACK
  2. MEDICATION (NOS) [Concomitant]
     Indication: DEPRESSION
  3. MEDICATION (NOS) [Concomitant]
     Indication: ANXIETY
  4. MEDICATION (NOS) [Concomitant]
     Indication: INSOMNIA
  5. TYSABRI [Suspect]
     Indication: MULTIPLE SCLEROSIS
     Route: 042
     Dates: start: 20090127

REACTIONS (6)
  - DECREASED APPETITE [None]
  - DIZZINESS [None]
  - NAUSEA [None]
  - WEIGHT DECREASED [None]
  - INSOMNIA [None]
  - HYPERHIDROSIS [None]
